FAERS Safety Report 15419517 (Version 1)
Quarter: 2018Q3

REPORT INFORMATION
  Report Type: Spontaneous
  Country: US (occurrence: US)
  Receive Date: 20180924
  Receipt Date: 20180924
  Transmission Date: 20181010
  Serious: Yes (Hospitalization)
  Sender: FDA-Public Use
  Company Number: US-VERTEX PHARMACEUTICALS-2018-006743

PATIENT
  Age: 19 Year
  Sex: Female

DRUGS (25)
  1. SYMDEKO [Suspect]
     Active Substance: IVACAFTOR\TEZACAFTOR
     Indication: CYSTIC FIBROSIS
     Dosage: 100MG TEZACAFTOR/150MG IVACAFTOR AM; 150MG IVACAFTOR PM
     Route: 048
     Dates: start: 20180328
  2. FLUTICASONE. [Concomitant]
     Active Substance: FLUTICASONE
  3. CIPRODEX                           /00697202/ [Concomitant]
  4. CHLORHEX [Concomitant]
  5. PARI [Concomitant]
  6. HYDROCODONE POLISTIREX AND CHLORPHENIRAMINE P [Concomitant]
  7. TOPIRAMATE. [Concomitant]
     Active Substance: TOPIRAMATE
  8. PREDNISONE. [Concomitant]
     Active Substance: PREDNISONE
  9. AMOXICILLIN. [Concomitant]
     Active Substance: AMOXICILLIN
  10. BELSOMRA [Concomitant]
     Active Substance: SUVOREXANT
  11. LINEZOLID. [Concomitant]
     Active Substance: LINEZOLID
  12. AMITRIPTYLINE [Concomitant]
     Active Substance: AMITRIPTYLINE
  13. ESZOPICLONE. [Concomitant]
     Active Substance: ESZOPICLONE
  14. PROAIR HFA [Concomitant]
     Active Substance: ALBUTEROL SULFATE
  15. OFLOXACIN. [Concomitant]
     Active Substance: OFLOXACIN
  16. PROMETHAZINE W/CODEINE [Concomitant]
     Active Substance: CODEINE\PROMETHAZINE
  17. SMZ?TMP [Concomitant]
     Active Substance: SULFAMETHOXAZOLE\TRIMETHOPRIM
  18. AMOXICILLIN AND CLAVULANATE POTASSIUM [Concomitant]
     Active Substance: AMOXICILLIN\CLAVULANATE POTASSIUM
  19. PROPANOLOL                         /00030001/ [Concomitant]
     Active Substance: PROPRANOLOL HYDROCHLORIDE
  20. HYDROCODONE BITARTRATE AND ACETAMINOPHEN [Concomitant]
     Active Substance: ACETAMINOPHEN\HYDROCODONE BITARTRATE
  21. VANACOF [Concomitant]
     Active Substance: CHLOPHEDIANOL HYDROCHLORIDE\DEXCHLORPHENIRAMINE MALEATE\PSEUDOEPHEDRINE HYDROCHLORIDE
  22. CIPROFLOXACIN. [Concomitant]
     Active Substance: CIPROFLOXACIN
  23. SERTRALINE [Concomitant]
     Active Substance: SERTRALINE HYDROCHLORIDE
  24. ZALEPLON. [Concomitant]
     Active Substance: ZALEPLON
  25. SUMATRIPTAN. [Concomitant]
     Active Substance: SUMATRIPTAN

REACTIONS (1)
  - Hospitalisation [Unknown]

NARRATIVE: CASE EVENT DATE: 201808
